FAERS Safety Report 15344907 (Version 1)
Quarter: 2018Q3

REPORT INFORMATION
  Report Type: Spontaneous
  Country: GB (occurrence: GB)
  Receive Date: 20180903
  Receipt Date: 20180903
  Transmission Date: 20181010
  Serious: Yes (Other)
  Sender: FDA-Public Use
  Company Number: GB-PFIZER INC-2018347360

PATIENT
  Age: 57 Year
  Sex: Female
  Weight: 84 kg

DRUGS (12)
  1. SUMATRIPTAN SUCCINATE. [Concomitant]
     Active Substance: SUMATRIPTAN SUCCINATE
  2. LOPERAMIDE [Concomitant]
     Active Substance: LOPERAMIDE
  3. COLESEVELAM [Concomitant]
     Active Substance: COLESEVELAM
  4. SERTRALINE HCL [Suspect]
     Active Substance: SERTRALINE HYDROCHLORIDE
     Dosage: 50 MG, UNK
     Route: 048
     Dates: start: 20180525
  5. SERTRALINE HCL [Suspect]
     Active Substance: SERTRALINE HYDROCHLORIDE
     Indication: DEPRESSION
     Dosage: 25 MG, UNK
     Route: 048
     Dates: start: 20180518, end: 20180525
  6. VITAMIN B12 [VITAMIN B12 NOS] [Concomitant]
  7. LISINOPRIL. [Concomitant]
     Active Substance: LISINOPRIL
  8. LANSOPRAZOLE. [Concomitant]
     Active Substance: LANSOPRAZOLE
  9. METHOTREXATE. [Concomitant]
     Active Substance: METHOTREXATE
     Dosage: UNK
  10. INFLIXIMAB [Concomitant]
     Active Substance: INFLIXIMAB
  11. FOLIC ACID. [Concomitant]
     Active Substance: FOLIC ACID
  12. SERTRALINE HCL [Suspect]
     Active Substance: SERTRALINE HYDROCHLORIDE
     Dosage: 100 MG, UNK (INCREASED FROM 25MG TO 50MG TO 100MG)
     Route: 048
     Dates: end: 20180726

REACTIONS (7)
  - Breast enlargement [Not Recovered/Not Resolved]
  - Insomnia [Not Recovered/Not Resolved]
  - Breast mass [Recovering/Resolving]
  - Haematochezia [Not Recovered/Not Resolved]
  - Sexual dysfunction [Recovering/Resolving]
  - Breast pain [Recovering/Resolving]
  - Nausea [Recovered/Resolved]

NARRATIVE: CASE EVENT DATE: 20180620
